FAERS Safety Report 7472114-3 (Version None)
Quarter: 2011Q2

REPORT INFORMATION
  Report Type: 
  Country: None (occurrence: None)
  Receive Date: 20110511
  Receipt Date: 20110103
  Transmission Date: 20111010
  Serious: No
  Sender: FDA-Public Use
  Company Number: A0903727A

PATIENT
  Sex: Female

DRUGS (1)
  1. TYKERB [Suspect]
     Dosage: 1250MG PER DAY
     Route: 048
     Dates: start: 20101226

REACTIONS (12)
  - SENSATION OF PRESSURE [None]
  - DIARRHOEA [None]
  - CHROMATURIA [None]
  - NAUSEA [None]
  - COUGH [None]
  - HYPOPHAGIA [None]
  - HUNGER [None]
  - FEELING ABNORMAL [None]
  - FATIGUE [None]
  - HOT FLUSH [None]
  - FEELING COLD [None]
  - ABDOMINAL PAIN UPPER [None]
